FAERS Safety Report 9864008 (Version 1)
Quarter: 2014Q1

REPORT INFORMATION
  Report Type: Spontaneous
  Country: JP (occurrence: JP)
  Receive Date: 20140203
  Receipt Date: 20140203
  Transmission Date: 20141002
  Serious: Yes (Death, Other)
  Sender: FDA-Public Use
  Company Number: PHJP2014JP000501

PATIENT
  Age: 50 Year
  Sex: Male

DRUGS (1)
  1. RITALIN [Suspect]
     Indication: DEPRESSION
     Dosage: 10 MG, UNK
     Route: 048

REACTIONS (5)
  - Completed suicide [Fatal]
  - Drug withdrawal syndrome [Unknown]
  - Feeling abnormal [Unknown]
  - Hallucination [Unknown]
  - Hallucination, auditory [Unknown]
